FAERS Safety Report 23335883 (Version 1)
Quarter: 2023Q4

REPORT INFORMATION
  Report Type: Spontaneous
  Country: US (occurrence: US)
  Receive Date: 20231225
  Receipt Date: 20231225
  Transmission Date: 20240110
  Serious: No
  Sender: FDA-Public Use
  Company Number: US-SANDOZ-SDZ2023US069069

PATIENT
  Age: 52 Year
  Sex: Male

DRUGS (1)
  1. DICLOFENAC [Suspect]
     Active Substance: DICLOFENAC
     Indication: Dermatitis papillaris capillitii
     Dosage: UNK UNK, QD
     Route: 065

REACTIONS (1)
  - Drug ineffective for unapproved indication [Unknown]
